FAERS Safety Report 13539127 (Version 1)
Quarter: 2017Q2

REPORT INFORMATION
  Report Type: Spontaneous
  Country: US (occurrence: US)
  Receive Date: 20170512
  Receipt Date: 20170512
  Transmission Date: 20170830
  Serious: Yes (Other)
  Sender: FDA-Public Use
  Company Number: PHHY2017US067774

PATIENT
  Sex: Female

DRUGS (3)
  1. DOXORUBICIN [Suspect]
     Active Substance: DOXORUBICIN
     Indication: TRIPLE NEGATIVE BREAST CANCER
     Dosage: 30 MG/M2, Q3W
     Route: 042
  2. BEVACIZUMAB [Suspect]
     Active Substance: BEVACIZUMAB
     Indication: TRIPLE NEGATIVE BREAST CANCER
     Dosage: 15 MG/KG, Q3W
     Route: 042
  3. EVEROLIMUS [Suspect]
     Active Substance: EVEROLIMUS
     Indication: TRIPLE NEGATIVE BREAST CANCER
     Dosage: 7.5 MG, QD
     Route: 048

REACTIONS (1)
  - Liver function test abnormal [Unknown]
